FAERS Safety Report 8146940-1 (Version None)
Quarter: 2012Q1

REPORT INFORMATION
  Report Type: 
  Country: None (occurrence: None)
  Receive Date: 20120217
  Receipt Date: 20120213
  Transmission Date: 20120608
  Serious: Yes (Death)
  Sender: FDA-Public Use
  Company Number: DE-ASTRAZENECA-2012SE09989

PATIENT
  Age: 42 Year
  Sex: Female

DRUGS (3)
  1. ENOXAPARIN SODIUM [Suspect]
     Route: 065
  2. ASPIRIN [Concomitant]
  3. BRILIQUE [Suspect]
     Route: 048

REACTIONS (1)
  - HAEMORRHAGE [None]
